FAERS Safety Report 5248480-6 (Version None)
Quarter: 2007Q1

REPORT INFORMATION
  Report Type: 
  Country: None (occurrence: None)
  Receive Date: 20070227
  Receipt Date: 20070215
  Transmission Date: 20070707
  Serious: Yes (Hospitalization)
  Sender: FDA-Public Use
  Company Number: SE-PFIZER INC-2006077433

PATIENT
  Sex: Male
  Weight: 59.4 kg

DRUGS (10)
  1. SU-011,248 [Suspect]
     Indication: RENAL CELL CARCINOMA STAGE UNSPECIFIED
     Route: 048
     Dates: start: 20051202, end: 20060615
  2. BETAMETHASONE [Concomitant]
     Route: 048
  3. ZOPICLONE [Concomitant]
     Route: 048
     Dates: start: 20050126
  4. METOCLOPRAMIDE [Concomitant]
     Route: 048
     Dates: start: 20051005
  5. BROMHEXINE [Concomitant]
     Route: 048
     Dates: start: 20051005
  6. EFEDRIN [Concomitant]
     Route: 048
  7. CALCIUM CARBONATE/MAGNESIUM HYDROXIDE [Concomitant]
     Route: 048
     Dates: start: 20051230
  8. PROCHLORPERAZINE [Concomitant]
     Route: 048
     Dates: start: 20060223
  9. SODIUM PICOSULFATE [Concomitant]
     Route: 048
     Dates: start: 20060223
  10. GRANISETRON [Concomitant]
     Route: 048
     Dates: start: 20060419

REACTIONS (3)
  - HAEMATEMESIS [None]
  - OESOPHAGITIS [None]
  - SYNCOPE [None]
